FAERS Safety Report 25795928 (Version 1)
Quarter: 2025Q3

REPORT INFORMATION
  Report Type: Spontaneous
  Country: CN (occurrence: CN)
  Receive Date: 20250912
  Receipt Date: 20250912
  Transmission Date: 20251021
  Serious: Yes (Hospitalization)
  Sender: BAYER HEALTHCARE PHARMACEUTICALS INC.
  Company Number: CN-BAYER-2025A119696

PATIENT
  Age: 59 Year
  Sex: Male
  Weight: 60 kg

DRUGS (2)
  1. ULTRAVIST [Suspect]
     Active Substance: IOPROMIDE
     Indication: Computerised tomogram abdomen
     Route: 042
     Dates: start: 20250903, end: 20250903
  2. ULTRAVIST [Suspect]
     Active Substance: IOPROMIDE
     Indication: Metastases to liver

REACTIONS (8)
  - Ciliary hyperaemia [Recovering/Resolving]
  - Swelling of eyelid [Recovered/Resolved]
  - Erythema of eyelid [Recovered/Resolved]
  - Eyelids pruritus [Recovering/Resolving]
  - Lip erythema [Recovered/Resolved]
  - Lip swelling [Recovered/Resolved]
  - Swelling face [Recovered/Resolved]
  - Lip pruritus [Recovering/Resolving]

NARRATIVE: CASE EVENT DATE: 20250903
